FAERS Safety Report 4389473-0 (Version None)
Quarter: 2004Q3

REPORT INFORMATION
  Report Type: 
  Country: None (occurrence: None)
  Receive Date: 20040702
  Receipt Date: 20040625
  Transmission Date: 20050211
  Serious: Yes (Other)
  Sender: FDA-Public Use
  Company Number: PHBS2004JP08538

PATIENT
  Sex: Male

DRUGS (2)
  1. DIOVAN [Suspect]
     Indication: HYPERTENSION
     Dosage: 80 MG, UNK
     Route: 048
  2. ADALAT [Concomitant]
     Dosage: UNK, UNK
     Route: 048

REACTIONS (2)
  - CARDIAC OPERATION [None]
  - PLATELET COUNT DECREASED [None]
